FAERS Safety Report 18668027 (Version 1)
Quarter: 2020Q4

REPORT INFORMATION
  Report Type: Spontaneous
  Country: JP (occurrence: JP)
  Receive Date: 20201228
  Receipt Date: 20201228
  Transmission Date: 20210114
  Serious: Yes (Other)
  Sender: FDA-Public Use
  Company Number: NVSJ2020JP014311

PATIENT
  Age: 52 Year
  Sex: Male

DRUGS (2)
  1. MEKINIST [Suspect]
     Active Substance: TRAMETINIB DIMETHYL SULFOXIDE
     Indication: GALLBLADDER CANCER
     Dosage: UNK
     Route: 048
     Dates: end: 202011
  2. TAFINLAR [Suspect]
     Active Substance: DABRAFENIB MESYLATE
     Indication: GALLBLADDER CANCER
     Dosage: UNK
     Route: 048
     Dates: end: 202011

REACTIONS (4)
  - Gallbladder cancer [Unknown]
  - Malignant neoplasm progression [Unknown]
  - Product use in unapproved indication [Unknown]
  - Anaemia [Unknown]
